APPROVED DRUG PRODUCT: ESTRADIOL
Active Ingredient: ESTRADIOL
Strength: 0.1MG/24HR
Dosage Form/Route: SYSTEM;TRANSDERMAL
Application: A206241 | Product #005 | TE Code: AB1
Applicant: ZYDUS PHARMACEUTICALS USA INC
Approved: Dec 1, 2022 | RLD: No | RS: No | Type: RX